FAERS Safety Report 5926124-5 (Version None)
Quarter: 2008Q4

REPORT INFORMATION
  Report Type: 
  Country: None (occurrence: None)
  Receive Date: 20081016
  Receipt Date: 20081006
  Transmission Date: 20090506
  Serious: Yes (Hospitalization)
  Sender: FDA-Public Use
  Company Number: 2008-181780-NL

PATIENT
  Age: 50 Year
  Sex: Female

DRUGS (3)
  1. ETONOGESTREL (BATCH #: 649200/774678) [Suspect]
     Dosage: DF, SUBCUTANEOUS
     Route: 058
     Dates: start: 20050526, end: 20080808
  2. DIOSMIN [Concomitant]
  3. POTASSIUM CHLORIDE [Concomitant]

REACTIONS (1)
  - BREAST CANCER FEMALE [None]
